FAERS Safety Report 19075785 (Version 1)
Quarter: 2021Q1

REPORT INFORMATION
  Report Type: Report from Study
  Country: PA (occurrence: PA)
  Receive Date: 20210330
  Receipt Date: 20210330
  Transmission Date: 20210420
  Serious: Yes (Hospitalization)
  Sender: FDA-Public Use
  Company Number: NVSC2021PA068466

PATIENT
  Age: 56 Year
  Sex: Female

DRUGS (2)
  1. VYMADA [Suspect]
     Active Substance: SACUBITRIL\VALSARTAN
     Indication: BLOOD PRESSURE MANAGEMENT
     Dosage: UNK (100 MG)
     Route: 065
     Dates: start: 202007, end: 202011
  2. VYMADA [Suspect]
     Active Substance: SACUBITRIL\VALSARTAN
     Dosage: UNK (200 MG)
     Route: 065
     Dates: start: 202011

REACTIONS (2)
  - Product use in unapproved indication [Unknown]
  - Cardiac failure [Unknown]
